FAERS Safety Report 4379852-X (Version None)
Quarter: 2004Q2

REPORT INFORMATION
  Report Type: 
  Country: None (occurrence: None)
  Receive Date: 20040617
  Receipt Date: 20040218
  Transmission Date: 20050107
  Serious: Yes (Hospitalization)
  Sender: FDA-Public Use
  Company Number: FR-BRISTOL-MYERS SQUIBB COMPANY-12512893

PATIENT
  Age: 67 Year
  Sex: Female
  Weight: 84 kg

DRUGS (7)
  1. COAPROVEL TABS 300MG/12.5MG [Suspect]
     Indication: HYPERTENSION
     Route: 048
     Dates: start: 20031207, end: 20040107
  2. ATACAND [Concomitant]
  3. CARDENSIEL [Concomitant]
  4. FLUDEX [Concomitant]
  5. PRAVASTATIN [Concomitant]
  6. DIAMICRON [Concomitant]
  7. ALLOPURINOL TAB [Concomitant]

REACTIONS (1)
  - PEMPHIGOID [None]
